FAERS Safety Report 7959813-1 (Version None)
Quarter: 2011Q4

REPORT INFORMATION
  Report Type: 
  Country: None (occurrence: None)
  Receive Date: 20111206
  Receipt Date: 20111129
  Transmission Date: 20120403
  Serious: Yes (Hospitalization, Disabling)
  Sender: FDA-Public Use
  Company Number: GB-JNJFOC-20111108389

PATIENT
  Age: 65 Year
  Sex: Male
  Weight: 51 kg

DRUGS (15)
  1. LYRICA [Suspect]
     Indication: ABDOMINAL PAIN
     Route: 065
     Dates: start: 20080101
  2. TRAMADOL HCL [Suspect]
     Indication: PRODUCT USED FOR UNKNOWN INDICATION
     Route: 048
  3. ORAMORPH SR [Suspect]
     Indication: PRODUCT USED FOR UNKNOWN INDICATION
     Route: 065
  4. ORAMORPH SR [Suspect]
     Route: 065
  5. TRAMADOL HCL [Suspect]
     Dosage: 3 TIMES A DAY
     Route: 048
  6. FENTANYL-100 [Suspect]
     Indication: PRODUCT USED FOR UNKNOWN INDICATION
     Route: 062
  7. AN UNKNOWN MEDICATION [Suspect]
     Indication: PRODUCT USED FOR UNKNOWN INDICATION
     Route: 065
  8. ACETAMINOPHEN [Suspect]
     Indication: PRODUCT USED FOR UNKNOWN INDICATION
     Route: 065
  9. ACETAMINOPHEN [Suspect]
     Route: 065
  10. AN UNKNOWN MEDICATION [Suspect]
     Route: 065
  11. ROPINIROLE [Concomitant]
     Dosage: DOESE REDUCED
     Route: 065
  12. FENTANYL-100 [Suspect]
     Dosage: ONCE EVERY 3 DAYS
     Route: 062
  13. ROPINIROLE [Concomitant]
     Route: 065
  14. ORAMORPH SR [Suspect]
     Route: 065
  15. LYRICA [Suspect]
     Route: 065

REACTIONS (2)
  - CARDIO-RESPIRATORY ARREST [None]
  - ABDOMINAL PAIN [None]
